FAERS Safety Report 10985988 (Version 1)
Quarter: 2015Q2

REPORT INFORMATION
  Report Type: Report from Study
  Country: CA (occurrence: CA)
  Receive Date: 20150404
  Receipt Date: 20150404
  Transmission Date: 20150821
  Serious: Yes (Other)
  Sender: FDA-Public Use
  Company Number: PHHY2015CA033563

PATIENT
  Sex: Male

DRUGS (7)
  1. CLOZARIL [Suspect]
     Active Substance: CLOZAPINE
     Dosage: 200 MG, QD
     Route: 048
     Dates: start: 20111228
  2. CLOZARIL [Suspect]
     Active Substance: CLOZAPINE
     Indication: SCHIZOPHRENIA
     Dosage: 200 MG, QD
     Route: 048
     Dates: start: 2010
  3. OLANZAPINE. [Concomitant]
     Active Substance: OLANZAPINE
     Indication: PRODUCT USED FOR UNKNOWN INDICATION
     Dosage: 10 MG, QD
     Route: 065
  4. PROPRANOLOL [Concomitant]
     Active Substance: PROPRANOLOL\PROPRANOLOL HYDROCHLORIDE
     Indication: PRODUCT USED FOR UNKNOWN INDICATION
     Route: 065
  5. CITALOPRAM [Concomitant]
     Active Substance: CITALOPRAM HYDROBROMIDE
     Indication: PRODUCT USED FOR UNKNOWN INDICATION
     Dosage: 20 MG, QD
     Route: 065
  6. CLOZARIL [Suspect]
     Active Substance: CLOZAPINE
     Dosage: 200 MG ,QD
     Route: 048
     Dates: start: 201402, end: 201403
  7. CLOZARIL [Suspect]
     Active Substance: CLOZAPINE
     Dosage: 200 MG ,QD
     Route: 048
     Dates: end: 20150317

REACTIONS (3)
  - Bone marrow failure [Not Recovered/Not Resolved]
  - Hepatic function abnormal [Recovering/Resolving]
  - Tardive dyskinesia [Unknown]

NARRATIVE: CASE EVENT DATE: 2013
